FAERS Safety Report 9185550 (Version 1)
Quarter: 2013Q1

REPORT INFORMATION
  Report Type: Spontaneous
  Country: BR (occurrence: BR)
  Receive Date: 20130325
  Receipt Date: 20130325
  Transmission Date: 20140127
  Serious: Yes (Hospitalization, Other)
  Sender: FDA-Public Use
  Company Number: PHHY2013BR028283

PATIENT
  Sex: Male

DRUGS (7)
  1. DIOVAN HCT [Suspect]
     Indication: BLOOD PRESSURE ABNORMAL
     Dosage: 1 DF (160 MG VALS AND 25 MG HYDRO), DAILY
     Route: 048
     Dates: start: 20130216, end: 20130318
  2. DIOVAN AMLO FIX [Suspect]
     Indication: BLOOD PRESSURE ABNORMAL
     Dosage: 1 DF (160 MG VALS AND 10 MG AMLO), DAILY
     Route: 048
     Dates: end: 20130216
  3. CONCOR [Concomitant]
     Indication: CARDIAC DISORDER
     Dosage: 1 DF, DAILY
     Route: 048
     Dates: start: 20130218
  4. ATENSINA [Concomitant]
     Dosage: 2 DF, DAILY
     Route: 048
     Dates: start: 20130218
  5. LIPITOR [Concomitant]
     Indication: BLOOD TRIGLYCERIDES ABNORMAL
     Dosage: 1 DF, DAILY
     Route: 048
     Dates: start: 20130218
  6. NORIPURUM [Concomitant]
     Indication: ANAEMIA
     Dosage: 1 DF, DAILY
     Route: 048
     Dates: start: 20130218
  7. COUMADIN [Concomitant]
     Indication: ANTICOAGULANT THERAPY
     Dosage: 0.5 DF, DAILY
     Route: 048
     Dates: start: 20130218

REACTIONS (1)
  - Thrombosis [Recovering/Resolving]
